FAERS Safety Report 7645771-6 (Version None)
Quarter: 2011Q3

REPORT INFORMATION
  Report Type: 
  Country: None (occurrence: None)
  Receive Date: 20110729
  Receipt Date: 20110720
  Transmission Date: 20111222
  Serious: Yes (Hospitalization)
  Sender: FDA-Public Use
  Company Number: US-ELI_LILLY_AND_COMPANY-US201107006426

PATIENT
  Sex: Female

DRUGS (2)
  1. HUMALOG MIX 75/25 [Suspect]
     Dosage: 42 U, BID
     Dates: start: 20090101
  2. HUMALOG MIX 75/25 [Suspect]
     Indication: TYPE 2 DIABETES MELLITUS
     Dosage: 42 U, BID
     Dates: start: 20090101

REACTIONS (2)
  - MOBILITY DECREASED [None]
  - LIGAMENT RUPTURE [None]
